FAERS Safety Report 12340653 (Version 3)
Quarter: 2016Q3

REPORT INFORMATION
  Report Type: Spontaneous
  Country: US (occurrence: US)
  Receive Date: 20160506
  Receipt Date: 20160817
  Transmission Date: 20161109
  Serious: No
  Sender: FDA-Public Use
  Company Number: US-ASTRAZENECA-2016SE36522

PATIENT
  Sex: Female

DRUGS (2)
  1. PULMICORT FLEXHALER [Suspect]
     Active Substance: BUDESONIDE
     Route: 065
  2. PULMICORT FLEXHALER [Suspect]
     Active Substance: BUDESONIDE
     Dosage: ONE PUFF TWICE A DAY
     Route: 055
     Dates: start: 20160331

REACTIONS (3)
  - Drug ineffective [Unknown]
  - Device failure [Unknown]
  - Cough [Unknown]
